FAERS Safety Report 16906102 (Version 7)
Quarter: 2020Q1

REPORT INFORMATION
  Report Type: Report from Study
  Country: None (occurrence: GB)
  Receive Date: 20191010
  Receipt Date: 20200103
  Transmission Date: 20200409
  Serious: Yes (Hospitalization)
  Sender: FDA-Public Use
  Company Number: GB-ABBVIE-19K-167-2940488-00

PATIENT
  Age: 74 Year
  Sex: Male

DRUGS (1)
  1. DUODOPA [Suspect]
     Active Substance: CARBIDOPA\LEVODOPA
     Indication: PARKINSON^S DISEASE
     Dosage: 5MG/1ML??20MG/1ML??100ML??1 CASSETTE DAILY
     Route: 050
     Dates: end: 20191004

REACTIONS (10)
  - Hypokinesia [Unknown]
  - Condition aggravated [Not Recovered/Not Resolved]
  - Unintentional medical device removal [Not Recovered/Not Resolved]
  - Incorrect dose administered [Unknown]
  - Confusional state [Unknown]
  - Dementia [Not Recovered/Not Resolved]
  - Urinary tract infection [Recovered/Resolved]
  - Psychomotor hyperactivity [Unknown]
  - On and off phenomenon [Unknown]
  - Malaise [Not Recovered/Not Resolved]

NARRATIVE: CASE EVENT DATE: 2019
